FAERS Safety Report 5441557-1 (Version None)
Quarter: 2007Q3

REPORT INFORMATION
  Report Type: 
  Country: None (occurrence: None)
  Receive Date: 20070904
  Receipt Date: 20070829
  Transmission Date: 20080115
  Serious: Yes (Other)
  Sender: FDA-Public Use
  Company Number: JP-BRISTOL-MYERS SQUIBB COMPANY-13895297

PATIENT
  Age: 68 Year
  Sex: Female

DRUGS (2)
  1. FUNGIZONE [Suspect]
     Indication: ASPERGILLOSIS
     Route: 042
  2. MICAFUNGIN SODIUM [Concomitant]
     Route: 042

REACTIONS (1)
  - PANCYTOPENIA [None]
